FAERS Safety Report 5724615-3 (Version None)
Quarter: 2008Q2

REPORT INFORMATION
  Report Type: 
  Country: None (occurrence: None)
  Receive Date: 20080430
  Receipt Date: 20080430
  Transmission Date: 20081010
  Serious: Yes (Other)
  Sender: FDA-Public Use
  Company Number: None

PATIENT
  Age: 33 Year
  Sex: Male

DRUGS (7)
  1. EXJADE [Suspect]
     Indication: IRON OVERLOAD
     Dosage: 2500MG ONCE DAILY
     Dates: start: 20060401
  2. HYDROXYUREA [Concomitant]
  3. METOPROLOL TARTRATE [Concomitant]
  4. OXYCODONE HCL [Concomitant]
  5. FOLIC ACID [Concomitant]
  6. HYDROMORPHONE HCL [Concomitant]
  7. ZOLPIDEM [Concomitant]

REACTIONS (3)
  - DRUG INTOLERANCE [None]
  - NAUSEA [None]
  - VOMITING [None]
